FAERS Safety Report 15300035 (Version 1)
Quarter: 2018Q3

REPORT INFORMATION
  Report Type: Spontaneous
  Country: US (occurrence: US)
  Receive Date: 20180808
  Receipt Date: 20180808
  Transmission Date: 20181010
  Serious: Yes (Other)
  Sender: FDA-Public Use
  Company Number: None

PATIENT
  Age: 39 Year
  Sex: Female

DRUGS (1)
  1. VIVITROL [Suspect]
     Active Substance: NALTREXONE
     Indication: DRUG USE DISORDER
     Route: 030
     Dates: start: 20180727

REACTIONS (3)
  - Depression [None]
  - Morbid thoughts [None]
  - Nightmare [None]

NARRATIVE: CASE EVENT DATE: 20180808
